FAERS Safety Report 15813374 (Version 2)
Quarter: 2021Q4

REPORT INFORMATION
  Report Type: Spontaneous
  Country: GB (occurrence: GB)
  Receive Date: 20190111
  Receipt Date: 20211203
  Transmission Date: 20220303
  Serious: Yes (Other)
  Sender: FDA-Public Use
  Company Number: None

PATIENT
  Age: 64 Year
  Sex: Female
  Weight: 63 kg

DRUGS (2)
  1. VAGIFEM [Suspect]
     Active Substance: ESTRADIOL
     Indication: Atrophic vulvovaginitis
     Dosage: 1 DF, QD
     Route: 067
     Dates: start: 201301
  2. VAGIFEM [Suspect]
     Active Substance: ESTRADIOL
     Dosage: 2 DF, QD
     Route: 067
     Dates: end: 20171109

REACTIONS (4)
  - Skin burning sensation [Recovered/Resolved]
  - Staphylococcal infection [Recovered/Resolved]
  - Candida infection [Recovered/Resolved]
  - Vulvovaginal discomfort [Recovered/Resolved]
